FAERS Safety Report 5493541-X (Version None)
Quarter: 2007Q4

REPORT INFORMATION
  Report Type: 
  Country: None (occurrence: None)
  Receive Date: 20071019
  Receipt Date: 20071012
  Transmission Date: 20080405
  Serious: Yes (Other)
  Sender: FDA-Public Use
  Company Number: TUK2007A00057

PATIENT
  Age: 64 Year
  Sex: Female

DRUGS (3)
  1. ACTOS [Suspect]
     Indication: GLYCOSYLATED HAEMOGLOBIN INCREASED
     Dosage: 30 MG
     Route: 048
     Dates: start: 20070315, end: 20070531
  2. INSULIN [Concomitant]
  3. METFORMIN HCL [Concomitant]

REACTIONS (4)
  - CARDIAC FAILURE [None]
  - JOINT SWELLING [None]
  - OEDEMA PERIPHERAL [None]
  - WEIGHT INCREASED [None]
